FAERS Safety Report 18080675 (Version 3)
Quarter: 2021Q3

REPORT INFORMATION
  Report Type: Spontaneous
  Country: NZ (occurrence: NZ)
  Receive Date: 20200728
  Receipt Date: 20210823
  Transmission Date: 20211014
  Serious: Yes (Hospitalization)
  Sender: FDA-Public Use
  Company Number: NZ-MYLANLABS-2020M1067290

PATIENT
  Sex: Male

DRUGS (22)
  1. FENTANYL. [Concomitant]
     Active Substance: FENTANYL
     Dosage: 25 MICROGRAM
     Route: 042
  2. MIDAZOLAM. [Concomitant]
     Active Substance: MIDAZOLAM
     Dosage: 2 MILLIGRAM
     Route: 042
  3. OMEPRAZOLE. [Concomitant]
     Active Substance: OMEPRAZOLE
     Dosage: 40 MILLIGRAM, QD
     Route: 048
     Dates: start: 20200710
  4. LORATADINE. [Concomitant]
     Active Substance: LORATADINE
     Dosage: 10 MILLIGRAM, QD
     Route: 048
     Dates: start: 20200710
  5. KLEAN?PREP [Concomitant]
     Active Substance: ELECTROLYTES NOS\POLYETHYLENE GLYCOL 3350
     Dosage: 1 TO 3 SACHETS ORAL STAT AT 18:44 1 SACHET MIXED WITH 1 LTR OF WATER.
     Route: 048
     Dates: start: 20200721
  6. PROMETHAZINE [Concomitant]
     Active Substance: PROMETHAZINE HYDROCHLORIDE
     Dosage: 10 MG ORAL MIN DOSAGE INTERVAL 2 HRS PRN UPTO 40 MG /24 HRS
     Route: 048
     Dates: start: 20200718
  7. ASPIRIN                            /00002701/ [Concomitant]
     Active Substance: ASPIRIN
     Dosage: 100 MILLIGRAM, QD
     Route: 048
     Dates: start: 20200710
  8. PROMETHAZINE [Concomitant]
     Active Substance: PROMETHAZINE HYDROCHLORIDE
     Dosage: 10 MILLIGRAM, PM
     Route: 048
     Dates: start: 20200710
  9. CLOZARIL [Suspect]
     Active Substance: CLOZAPINE
     Indication: SCHIZOPHRENIA
     Dosage: UNK
     Route: 048
     Dates: start: 20190320, end: 20200720
  10. ATORVASTATIN [Concomitant]
     Active Substance: ATORVASTATIN
     Dosage: 20 MILLIGRAM, AM
     Route: 048
     Dates: start: 20200710
  11. CILAZAPRIL [Concomitant]
     Active Substance: CILAZAPRIL ANHYDROUS
     Dosage: 1 MILLIGRAM, QD
     Route: 048
     Dates: start: 20200710
  12. PARACETAMOL [Concomitant]
     Active Substance: ACETAMINOPHEN
     Dosage: 1000 MG ORAL MIN DOSAGE INTERVAL 4 HRS PRN, UPTO 4000 MG /24 HRS
     Route: 048
     Dates: start: 20200712
  13. NICOTINA ACTAVIS [Concomitant]
     Dosage: 2 MG BUCCAL MIN DOSAGE INTERVAL 30 MIN PRN UPTO 12 DOSAGE /24 HRS
     Route: 002
     Dates: start: 20200718
  14. CLOZARIL [Suspect]
     Active Substance: CLOZAPINE
     Dosage: 125 MILLIGRAM, NOCTE
     Route: 048
     Dates: start: 20210325
  15. IBUPROFEN. [Concomitant]
     Active Substance: IBUPROFEN
     Dosage: 200?400 MG ORAL MIN DOSAGE INTERVAL 4 HRS PRN UPTO 1600 MG /24 HRS
     Route: 048
     Dates: start: 20200712
  16. LAXSOL [Concomitant]
     Active Substance: DOCUSATE SODIUM\SENNOSIDES A AND B
     Dosage: 1?2 TAB ORAL MIN DOSAGE INTERVAL 8 HRS PRN UPTO 2 DOSES /24 HRS
     Route: 048
     Dates: start: 20200721
  17. CLONAZEPAM. [Concomitant]
     Active Substance: CLONAZEPAM
     Dosage: 500 MICROGRAM, PM
     Route: 048
     Dates: start: 20200721
  18. METFORMIN [Concomitant]
     Active Substance: METFORMIN HYDROCHLORIDE
     Dosage: 850 MILLIGRAM, BID
     Route: 048
     Dates: start: 20200710
  19. CLONAZEPAM. [Concomitant]
     Active Substance: CLONAZEPAM
     Indication: AGITATION
     Dosage: 2 MG ORAL MIN DOSAGE INTERVAL 6 HOURS PRN, UPTO 8 MG PER DAY
     Route: 048
     Dates: start: 20200709
  20. CLONAZEPAM. [Concomitant]
     Active Substance: CLONAZEPAM
     Dosage: 1000 MICROGRAM, AM
     Route: 048
     Dates: start: 20200722
  21. NICOTINA ACTAVIS [Concomitant]
     Dosage: 1 MG BUCCAL MIN DOSAGE INTERVAL 1 HR PRN, UP TO 12 DOSES PER 24 HRS
     Route: 002
     Dates: start: 20200718
  22. AMISULPRIDE [Concomitant]
     Active Substance: AMISULPRIDE
     Dosage: 400 MILLIGRAM, BID
     Route: 048
     Dates: start: 20200720

REACTIONS (2)
  - Intestinal atony [Unknown]
  - Gastrointestinal tract mucosal pigmentation [Unknown]
